FAERS Safety Report 4687374-1 (Version None)
Quarter: 2005Q2

REPORT INFORMATION
  Report Type: 
  Country: None (occurrence: None)
  Receive Date: 20050608
  Receipt Date: 20050526
  Transmission Date: 20051028
  Serious: Yes (Death, Other)
  Sender: FDA-Public Use
  Company Number: 2004106702

PATIENT
  Age: 35 Year
  Sex: Male
  Weight: 74.3899 kg

DRUGS (10)
  1. NEURONTIN [Suspect]
     Indication: MUSCLE SPASMS
  2. NEURONTIN [Suspect]
     Indication: PAIN
  3. TRAMADOL HCL [Suspect]
     Indication: ILL-DEFINED DISORDER
  4. ETHANOL (ETHANOL) [Suspect]
     Indication: ILL-DEFINED DISORDER
  5. ACETAMINOPHEN [Suspect]
     Indication: ILL-DEFINED DISORDER
  6. CARISOPRODOL [Suspect]
     Indication: ILL-DEFINED DISORDER
  7. MEPROBAMATE [Suspect]
     Indication: ILL-DEFINED DISORDER
  8. HYDROCODONE BITARTRATE [Suspect]
     Indication: ILL-DEFINED DISORDER
  9. OXYCODONE (OXYCODONE) [Suspect]
     Indication: ILL-DEFINED DISORDER
  10. PROMETHAZINE [Suspect]
     Indication: ILL-DEFINED DISORDER

REACTIONS (5)
  - COMPLETED SUICIDE [None]
  - DRUG TOXICITY [None]
  - OEDEMA [None]
  - POLYSUBSTANCE ABUSE [None]
  - PULMONARY CONGESTION [None]
